FAERS Safety Report 9625041 (Version 2)
Quarter: 2014Q1

REPORT INFORMATION
  Report Type: Spontaneous
  Country: US (occurrence: US)
  Receive Date: 20131016
  Receipt Date: 20140204
  Transmission Date: 20141002
  Serious: Yes (Death)
  Sender: FDA-Public Use
  Company Number: US-BRISTOL-MYERS SQUIBB COMPANY-19531755

PATIENT
  Age: 79 Year
  Sex: Male

DRUGS (25)
  1. BYETTA [Suspect]
     Indication: TYPE 2 DIABETES MELLITUS
     Dates: start: 20060912, end: 201008
  2. AVODART [Concomitant]
     Dosage: 1 DF = 0.5 UNITS.?0.5 MG CAPS, 1 CAPS.
  3. METFORMIN [Concomitant]
     Dosage: 1 DF = 500 UNITS, 2 TABS WITH MEALS.?4 DAILY.
  4. GLUCOTROL XL [Concomitant]
  5. BENICAR [Concomitant]
  6. CRESTOR [Concomitant]
  7. ZETIA [Concomitant]
  8. LASIX [Concomitant]
     Dosage: ONE HALF OF A TAB.
  9. REQUIP [Concomitant]
     Dosage: 2 MG TABS, 1 TAB, 1 TO 3 HOURS BEFORE BEDTIME BID.
  10. COUMADIN [Concomitant]
     Dosage: 1 TAB.
  11. ZEGERID [Concomitant]
     Dosage: 40-1100 MG CAPS, 1 CAPS ON AN EMPTY STOMACH.
  12. LORAZEPAM [Concomitant]
     Dosage: AT BED TIME.
  13. TRICOR [Concomitant]
     Dosage: 1 DF = 145 DAILY.
  14. LEVEMIR [Concomitant]
     Dosage: 1 DF = 3 UNITS AT BEDTIME.?100 UNIT/ML SOL.
  15. GLIPIZIDE [Concomitant]
  16. NORVASC [Concomitant]
     Dosage: 1 TAB.
  17. TRAMADOL [Concomitant]
     Dosage: 1 TAB AS NEEDED EVERY 8 HOURS.
  18. OXYCODONE HCL [Concomitant]
     Dosage: 1 TAB AS NEEDED.
  19. NEURONTIN [Concomitant]
     Dosage: 1 CAPS EACH AT BED TIME.
  20. BUMETANIDE [Concomitant]
     Dosage: 1 TAB.
  21. LOPRESSOR [Concomitant]
     Dosage: 1 TAB.
  22. MAGNESIUM SUPPLEMENT [Concomitant]
     Dosage: ER, L TAB.
  23. ZOLPIDEM TARTRATE [Concomitant]
     Dosage: 1 TAB AT BED TIME AS NEEDED.
  24. ZOFRAN [Concomitant]
  25. PHENERGAN [Concomitant]
     Dosage: 1 TAB

REACTIONS (1)
  - Pancreatic carcinoma [Fatal]
